FAERS Safety Report 9499662 (Version 1)
Quarter: 2013Q3

REPORT INFORMATION
  Report Type: Spontaneous
  Country: US (occurrence: None)
  Receive Date: 20130903
  Receipt Date: 20130903
  Transmission Date: 20140515
  Serious: No
  Sender: FDA-Public Use
  Company Number: None

PATIENT
  Age: 55 Year
  Sex: Female
  Weight: 68.04 kg

DRUGS (2)
  1. EFFEXOR XR [Suspect]
     Indication: MAJOR DEPRESSION
  2. WELLBUTRIN XL [Suspect]
     Indication: MAJOR DEPRESSION

REACTIONS (6)
  - Lethargy [None]
  - Nausea [None]
  - Depression [None]
  - Condition aggravated [None]
  - Product substitution issue [None]
  - Therapeutic response unexpected with drug substitution [None]
